FAERS Safety Report 4990376-9 (Version None)
Quarter: 2006Q2

REPORT INFORMATION
  Report Type: 
  Country: None (occurrence: None)
  Receive Date: 20060427
  Receipt Date: 20060410
  Transmission Date: 20061013
  Serious: Yes (Other)
  Sender: FDA-Public Use
  Company Number: 6022058

PATIENT
  Age: 16 Year
  Sex: Female

DRUGS (2)
  1. LEVOTHYROXINE SODIUM [Suspect]
     Indication: HYPOTHYROIDISM
  2. LEVOTHYROXINE SODIUM [Suspect]
     Indication: THYROID NEOPLASM

REACTIONS (7)
  - AGGRESSION [None]
  - EUPHORIC MOOD [None]
  - INSOMNIA [None]
  - IRRITABILITY [None]
  - LOGORRHOEA [None]
  - MANIA [None]
  - UNEVALUABLE EVENT [None]
